FAERS Safety Report 5096289-9 (Version None)
Quarter: 2006Q3

REPORT INFORMATION
  Report Type: 
  Country: None (occurrence: None)
  Receive Date: 20060830
  Receipt Date: 20060825
  Transmission Date: 20061208
  Serious: Yes (Hospitalization)
  Sender: FDA-Public Use
  Company Number: THQ2006A00798

PATIENT
  Age: 14 Year
  Sex: Female

DRUGS (1)
  1. LANZOR (LANSOPRAZOLE) (CAPSULES) [Suspect]
     Dosage: ONCE CAPSULES, PER ORAL
     Route: 048
     Dates: start: 20060408, end: 20060408

REACTIONS (7)
  - ABDOMINAL PAIN UPPER [None]
  - CHILLS [None]
  - MICROCYTIC ANAEMIA [None]
  - PYREXIA [None]
  - RENAL FAILURE [None]
  - TUBULOINTERSTITIAL NEPHRITIS [None]
  - URTICARIA [None]
